FAERS Safety Report 7199780-4 (Version None)
Quarter: 2010Q4

REPORT INFORMATION
  Report Type: 
  Country: None (occurrence: None)
  Receive Date: 20101228
  Receipt Date: 20101216
  Transmission Date: 20110411
  Serious: Yes (Hospitalization)
  Sender: FDA-Public Use
  Company Number: IN-ROCHE-747228

PATIENT
  Sex: Male
  Weight: 61 kg

DRUGS (4)
  1. INTERFERON ALFA [Suspect]
     Indication: METASTATIC RENAL CELL CARCINOMA
     Dosage: FREQUENCY: ALTERNATE DAY 3/7. THERAPY WITHHELD.
     Route: 058
     Dates: start: 20100720, end: 20101130
  2. INTERFERON ALFA [Suspect]
     Route: 058
  3. BEVACIZUMAB [Suspect]
     Indication: METASTATIC RENAL CELL CARCINOMA
     Route: 042
     Dates: start: 20100720
  4. AVIL [Suspect]
     Dosage: INDIACTION REPORTED: ALLERGIC RASH RIGHT UPPER LIMB.
     Route: 048
     Dates: start: 20101130, end: 20101202

REACTIONS (2)
  - FATIGUE [None]
  - HYPONATRAEMIA [None]
